FAERS Safety Report 8087013 (Version 2)
Quarter: 2012Q4

REPORT INFORMATION
  Report Type: Report from Study
  Country: US (occurrence: US)
  Receive Date: 20110811
  Receipt Date: 20121029
  Transmission Date: 20130627
  Serious: Yes (Hospitalization, Other)
  Sender: FDA-Public Use
  Company Number: US-ABBOTT-11P-163-0844994-00

PATIENT
  Age: 74 None
  Sex: Male
  Weight: 84.44 kg

DRUGS (14)
  1. HUMIRA 40 MG/0.8 ML PEN [Suspect]
     Indication: PSORIATIC ARTHROPATHY
     Route: 058
     Dates: start: 201006, end: 20110206
  2. HUMIRA 40 MG/0.8 ML PEN [Suspect]
     Indication: PSORIASIS
  3. BACTRIM DS [Suspect]
     Indication: DIARRHOEA
     Dates: start: 201108, end: 201108
  4. LISINOPRIL [Concomitant]
     Indication: PRODUCT USED FOR UNKNOWN INDICATION
     Dates: start: 201102
  5. COREG [Concomitant]
     Indication: PRODUCT USED FOR UNKNOWN INDICATION
     Dosage: 3.125mg twice daily
     Dates: start: 201106
  6. PENTASA [Concomitant]
     Indication: COLITIS ULCERATIVE
  7. KEPPRA [Concomitant]
     Indication: COMPLEX PARTIAL SEIZURES
     Dates: start: 2007
  8. PRILOSEC [Concomitant]
     Indication: DYSPEPSIA
  9. PRILOSEC [Concomitant]
     Indication: GASTROOESOPHAGEAL REFLUX DISEASE
  10. ALBUTEROL [Concomitant]
     Indication: ASTHMA
     Dosage: inhaler puff in morning and puff at night as needed
     Route: 055
     Dates: start: 1972
  11. COPIUM BROMIDE [Concomitant]
     Indication: CHRONIC OBSTRUCTIVE PULMONARY DISEASE
     Dosage: with breathing machine 2-3 times a day
     Route: 055
  12. COPIUM BROMIDE [Concomitant]
     Indication: RESPIRATORY TRACT CONGESTION
  13. OXYGEN [Concomitant]
     Indication: CHRONIC OBSTRUCTIVE PULMONARY DISEASE
     Dosage: at night during sleep
  14. METOPROLOL [Concomitant]
     Indication: PRODUCT USED FOR UNKNOWN INDICATION

REACTIONS (24)
  - Cardiac output decreased [Unknown]
  - Unevaluable event [Unknown]
  - Myocardial infarction [Recovered/Resolved]
  - Myocardial infarction [Unknown]
  - Cardiac disorder [Unknown]
  - Hiccups [Unknown]
  - Device malfunction [Unknown]
  - Device malfunction [Unknown]
  - Cardiac stress test abnormal [Unknown]
  - Ejection fraction abnormal [Unknown]
  - Coronary artery occlusion [Unknown]
  - Chest pain [Not Recovered/Not Resolved]
  - Dyspepsia [Recovered/Resolved]
  - Dyspepsia [Unknown]
  - Immune system disorder [Not Recovered/Not Resolved]
  - General physical health deterioration [Recovered/Resolved]
  - Asthenia [Recovered/Resolved]
  - Dyspnoea [Recovered/Resolved]
  - Chest pain [Recovered/Resolved]
  - Diarrhoea [Recovered/Resolved]
  - Arthralgia [Recovered/Resolved]
  - Abasia [Recovered/Resolved]
  - Asthenia [Not Recovered/Not Resolved]
  - Psoriasis [Not Recovered/Not Resolved]
